FAERS Safety Report 8593055-4 (Version None)
Quarter: 2012Q3

REPORT INFORMATION
  Report Type: 
  Country: None (occurrence: None)
  Receive Date: 20120814
  Receipt Date: 20111221
  Transmission Date: 20120928
  Serious: Yes (Life-Threatening, Hospitalization)
  Sender: FDA-Public Use
  Company Number: JP-GLAXOSMITHKLINE-B0771552A

PATIENT
  Sex: Male

DRUGS (5)
  1. URSO 250 [Concomitant]
     Dosage: 900MG PER DAY
     Route: 048
  2. REVOLADE [Suspect]
     Dosage: 25MG PER DAY
     Route: 048
     Dates: start: 20110802, end: 20110829
  3. REVOLADE [Suspect]
     Dosage: 50MG PER DAY
     Route: 048
     Dates: start: 20110830, end: 20120703
  4. FLUTICASONE FUROATE [Concomitant]
     Indication: RHINITIS
     Dosage: 55MCG PER DAY
     Route: 045
  5. REVOLADE [Suspect]
     Indication: IDIOPATHIC THROMBOCYTOPENIC PURPURA
     Dosage: 12.5MG PER DAY
     Route: 048
     Dates: start: 20110719, end: 20110801

REACTIONS (3)
  - MYELOFIBROSIS [None]
  - HAEMORRHAGIC DIATHESIS [None]
  - MYELODYSPLASTIC SYNDROME [None]
